FAERS Safety Report 26035741 (Version 1)
Quarter: 2025Q4

REPORT INFORMATION
  Report Type: Spontaneous
  Country: US (occurrence: None)
  Receive Date: 20251112
  Receipt Date: 20251112
  Transmission Date: 20260118
  Serious: Yes (Hospitalization)
  Sender: FDA-CTU
  Company Number: None

PATIENT
  Sex: Female

DRUGS (11)
  1. LENALIDOMIDE [Suspect]
     Active Substance: LENALIDOMIDE
     Indication: Plasma cell myeloma
     Dosage: T AKE 1 CAPSULE BY MOUTH EVERY DAY FOR 14 DAYS FOLLOWED BY 7 DAYS OFF.??
     Route: 048
     Dates: start: 20251003
  2. ACETAMINOPHEN [Concomitant]
     Active Substance: ACETAMINOPHEN
  3. ACYCLOVIR [Concomitant]
     Active Substance: ACYCLOVIR
  4. ADVAIR HFA [Concomitant]
     Active Substance: FLUTICASONE PROPIONATE\SALMETEROL XINAFOATE
  5. AMLODIPINE [Concomitant]
     Active Substance: AMLODIPINE BESYLATE
  6. ATORVASTATIN [Concomitant]
     Active Substance: ATORVASTATIN
  7. AZELASTINE [Concomitant]
     Active Substance: AZELASTINE
  8. CLINDAMYCIN [Concomitant]
     Active Substance: CLINDAMYCIN
  9. DEXAMETHASONE [Concomitant]
     Active Substance: DEXAMETHASONE
  10. FLONASE [Concomitant]
     Active Substance: FLUTICASONE PROPIONATE
  11. LEVOFLOXACIN [Concomitant]
     Active Substance: LEVOFLOXACIN

REACTIONS (2)
  - Dyspnoea [None]
  - Therapy change [None]
